FAERS Safety Report 23339462 (Version 1)
Quarter: 2023Q4

REPORT INFORMATION
  Report Type: Spontaneous
  Country: US (occurrence: None)
  Receive Date: 20231226
  Receipt Date: 20231226
  Transmission Date: 20240110
  Serious: Yes (Other)
  Sender: FDA-Public Use
  Company Number: None

PATIENT
  Age: 24 Year
  Sex: Female
  Weight: 63 kg

DRUGS (5)
  1. GABAPENTIN [Suspect]
     Active Substance: GABAPENTIN
     Indication: Off label use
     Dosage: 1 CAPSULE 3 TIMES A DAY ORAL
     Route: 048
     Dates: start: 20231205
  2. DULOXETINE HYDROCHLORIDE [Concomitant]
     Active Substance: DULOXETINE HYDROCHLORIDE
  3. FAMOTIDINE [Concomitant]
     Active Substance: FAMOTIDINE
  4. HYOSCYAMINE SULFATE [Concomitant]
     Active Substance: HYOSCYAMINE SULFATE
  5. ONDANSETRON [Concomitant]
     Active Substance: ONDANSETRON

REACTIONS (13)
  - Off label use [None]
  - Dizziness [None]
  - Impaired driving ability [None]
  - Bradyphrenia [None]
  - Clumsiness [None]
  - Slow speech [None]
  - Somnolence [None]
  - Contusion [None]
  - Dry mouth [None]
  - Anxiety [None]
  - Depression [None]
  - Post-traumatic stress disorder [None]
  - Job dissatisfaction [None]

NARRATIVE: CASE EVENT DATE: 20231225
